FAERS Safety Report 12013223 (Version 3)
Quarter: 2016Q1

REPORT INFORMATION
  Report Type: Spontaneous
  Country: US (occurrence: US)
  Receive Date: 20160205
  Receipt Date: 20160304
  Transmission Date: 20160526
  Serious: Yes (Other)
  Sender: FDA-Public Use
  Company Number: US-ASTRAZENECA-2013SE88905

PATIENT
  Age: 14502 Day
  Sex: Female
  Weight: 127 kg

DRUGS (28)
  1. AMLODIPINE BESILATE [Concomitant]
     Active Substance: AMLODIPINE BESYLATE
     Dates: start: 20090612
  2. SYNTHROID [Concomitant]
     Active Substance: LEVOTHYROXINE SODIUM
  3. SIMVASTATIN. [Concomitant]
     Active Substance: SIMVASTATIN
  4. DOXAZOSIN [Concomitant]
     Active Substance: DOXAZOSIN\DOXAZOSIN MESYLATE
     Dates: start: 20100616
  5. BYETTA [Suspect]
     Active Substance: EXENATIDE
     Indication: TYPE 2 DIABETES MELLITUS
     Dosage: 10 MCG  INJECT TWICE A DAY AS DIRECTED
     Route: 065
     Dates: start: 20110622
  6. LISINOPRIL. [Concomitant]
     Active Substance: LISINOPRIL
     Dates: start: 20090604
  7. HYDRALAZINE [Concomitant]
     Active Substance: HYDRALAZINE HYDROCHLORIDE
     Dates: start: 20090902
  8. CLONIDINE. [Concomitant]
     Active Substance: CLONIDINE
     Dates: start: 20091228
  9. COREG [Concomitant]
     Active Substance: CARVEDILOL
     Route: 048
  10. BYETTA [Suspect]
     Active Substance: EXENATIDE
     Indication: TYPE 2 DIABETES MELLITUS
     Dosage: S MCG/0.02 ML INJECT 5 MICROGRAMS TWICE
     Route: 065
     Dates: start: 20100728
  11. AMOX [Concomitant]
     Active Substance: UNSPECIFIED INGREDIENT
     Dates: start: 20101207
  12. NORVASC [Concomitant]
     Active Substance: AMLODIPINE BESYLATE
     Route: 048
  13. FLUCONAZOLE. [Concomitant]
     Active Substance: FLUCONAZOLE
     Dates: start: 20090904
  14. TEKTURNA [Concomitant]
     Active Substance: ALISKIREN HEMIFUMARATE
     Dates: start: 20101022
  15. GABAPENTIN. [Concomitant]
     Active Substance: GABAPENTIN
  16. SPIRONOLACTONE. [Concomitant]
     Active Substance: SPIRONOLACTONE
     Dates: start: 20090819
  17. BYETTA [Suspect]
     Active Substance: EXENATIDE
     Indication: TYPE 2 DIABETES MELLITUS
     Route: 065
     Dates: start: 201007, end: 201110
  18. ACTOS [Concomitant]
     Active Substance: PIOGLITAZONE HYDROCHLORIDE
     Dates: start: 20090612
  19. TRAMADOL. [Concomitant]
     Active Substance: TRAMADOL
     Dates: start: 20090925
  20. METRONIDAZOLE. [Concomitant]
     Active Substance: METRONIDAZOLE
     Dates: start: 20091003
  21. NAPROXEN. [Concomitant]
     Active Substance: NAPROXEN
     Dates: start: 20100217
  22. DIOVAN [Concomitant]
     Active Substance: VALSARTAN
     Dates: start: 20100512
  23. HYDROCHLOROTHIAZIDE. [Concomitant]
     Active Substance: HYDROCHLOROTHIAZIDE
  24. ASPIRIN. [Concomitant]
     Active Substance: ASPIRIN
  25. BYSTOLIC [Concomitant]
     Active Substance: NEBIVOLOL HYDROCHLORIDE
     Dates: start: 20090612
  26. CEPHALEXIN. [Concomitant]
     Active Substance: CEPHALEXIN
     Route: 048
     Dates: start: 20090629
  27. GLUCOPHAGE [Concomitant]
     Active Substance: METFORMIN HYDROCHLORIDE
  28. LEVEMIR [Concomitant]
     Active Substance: INSULIN DETEMIR

REACTIONS (5)
  - Goitre [Unknown]
  - Post procedural hypothyroidism [Unknown]
  - Follicular thyroid cancer [Unknown]
  - Papillary thyroid cancer [Unknown]
  - Autoimmune thyroiditis [Unknown]

NARRATIVE: CASE EVENT DATE: 20111101
